FAERS Safety Report 8885151 (Version 2)
Quarter: 2012Q4

REPORT INFORMATION
  Report Type: 
  Country: US (occurrence: US)
  Receive Date: 20121102
  Receipt Date: 20121128
  Transmission Date: 20130627
  Serious: No
  Sender: FDA-Public Use
  Company Number: US-PFIZER INC-2012272489

PATIENT
  Age: 70 Year
  Sex: Female
  Weight: 89.8 kg

DRUGS (5)
  1. LYRICA [Suspect]
     Indication: FIBROMYALGIA
     Dosage: 75 mg, 4x/day
  2. LYRICA [Suspect]
     Indication: BACK PAIN
     Dosage: 75 mg, 3x/day
  3. LYRICA [Suspect]
     Indication: SLEEP PROBLEM
  4. FENTANYL [Suspect]
     Indication: BACK PAIN
     Dosage: UNK
     Route: 062
     Dates: end: 20121026
  5. CELEXA [Concomitant]
     Indication: DEPRESSION
     Dosage: 20 mg, daily

REACTIONS (6)
  - Drug withdrawal syndrome [Not Recovered/Not Resolved]
  - Gastric disorder [Not Recovered/Not Resolved]
  - Influenza like illness [Not Recovered/Not Resolved]
  - Diarrhoea [Not Recovered/Not Resolved]
  - Neuropathy peripheral [Not Recovered/Not Resolved]
  - Nervous system disorder [Not Recovered/Not Resolved]
